FAERS Safety Report 15807780 (Version 1)
Quarter: 2019Q1

REPORT INFORMATION
  Report Type: Spontaneous
  Country: FR (occurrence: FR)
  Receive Date: 20190110
  Receipt Date: 20190110
  Transmission Date: 20190417
  Serious: Yes (Hospitalization)
  Sender: FDA-Public Use
  Company Number: FR-MYLANLABS-2019M1001864

PATIENT
  Age: 57 Year
  Sex: Female
  Weight: 78 kg

DRUGS (6)
  1. MESNA. [Suspect]
     Active Substance: MESNA
     Indication: PLASMA CELL MYELOMA
     Dosage: UNK
     Route: 042
     Dates: start: 20160229, end: 20160229
  2. ENDOXAN                            /00021102/ [Suspect]
     Active Substance: CYCLOPHOSPHAMIDE
     Indication: PLASMA CELL MYELOMA
     Dosage: 3000 MILLIGRAM/SQ. METER
     Route: 042
     Dates: start: 20160229, end: 20160229
  3. ALKERAN [Suspect]
     Active Substance: MELPHALAN
     Indication: TRANSPLANT
     Dosage: UNK
     Route: 042
     Dates: start: 20160409, end: 20160409
  4. VELCADE [Suspect]
     Active Substance: BORTEZOMIB
     Indication: PLASMA CELL MYELOMA
     Dosage: 1.3 MILLIGRAM/SQ. METER
     Route: 058
     Dates: start: 20151109, end: 20160201
  5. THALIDOMIDE CELGENE [Suspect]
     Active Substance: THALIDOMIDE
     Indication: PLASMA CELL MYELOMA
     Dosage: 400 MILLIGRAM, QD
     Route: 048
     Dates: start: 20151109, end: 201602
  6. DEXAMETHASONE. [Suspect]
     Active Substance: DEXAMETHASONE
     Indication: PLASMA CELL MYELOMA
     Dosage: 40 MILLIGRAM
     Route: 042
     Dates: start: 20151109, end: 20160201

REACTIONS (2)
  - Congestive cardiomyopathy [Recovered/Resolved with Sequelae]
  - Ejection fraction decreased [Recovered/Resolved with Sequelae]

NARRATIVE: CASE EVENT DATE: 20160616
